FAERS Safety Report 7780886-3 (Version None)
Quarter: 2011Q3

REPORT INFORMATION
  Report Type: 
  Country: None (occurrence: None)
  Receive Date: 20110923
  Receipt Date: 20110908
  Transmission Date: 20111222
  Serious: Yes (Other)
  Sender: FDA-Public Use
  Company Number: AUR-APL-2011-05052

PATIENT
  Age: 54 Year
  Sex: Male

DRUGS (6)
  1. NITROGLYCERIN [Suspect]
  2. AMIODARONE HCL [Suspect]
     Dosage: 400 MG (200 MG, 2 IN 1 D),
  3. ALTACE [Suspect]
     Dosage: (10 MG, 1 D),
  4. METOPROLOL TARTRATE [Suspect]
     Dosage: 100 MG (50 MG, 2 IN 1 D),
  5. NORVASC [Suspect]
     Dosage: (5 MG, 1 D),
  6. DIGOXIN [Suspect]
     Dosage: (0.25 MCG, 1 D),

REACTIONS (7)
  - BLOOD PRESSURE SYSTOLIC INCREASED [None]
  - CHEST PAIN [None]
  - BACK PAIN [None]
  - LOSS OF EMPLOYMENT [None]
  - WEIGHT INCREASED [None]
  - ECONOMIC PROBLEM [None]
  - DYSPNOEA [None]
